FAERS Safety Report 9176101 (Version 1)
Quarter: 2012Q4

REPORT INFORMATION
  Report Type: 
  Country: US (occurrence: US)
  Receive Date: 20120917
  Receipt Date: 20120917
  Transmission Date: 20130627
  Serious: Yes (Other)
  Sender: FDA-Public Use
  Company Number: US-BIOMARINP-002993

PATIENT
  Sex: Female

DRUGS (1)
  1. KUVAN [Suspect]
     Indication: PHENYLKETONURIA
     Route: 048
     Dates: start: 2009

REACTIONS (10)
  - Asthma [Recovered/Resolved]
  - Fatigue [Recovered/Resolved]
  - Feeling abnormal [Recovered/Resolved]
  - Exposure during pregnancy [Recovered/Resolved]
  - Drug administration error [None]
  - Economic problem [None]
  - Dizziness [None]
  - Hallucination, visual [None]
  - Pregnancy [None]
  - Respiratory arrest [None]
